FAERS Safety Report 24585193 (Version 6)
Quarter: 2025Q1

REPORT INFORMATION
  Report Type: Spontaneous
  Country: US (occurrence: US)
  Receive Date: 20241106
  Receipt Date: 20250313
  Transmission Date: 20250409
  Serious: No
  Sender: PFIZER
  Company Number: US-PFIZER INC-PV202400142587

PATIENT
  Age: 72 Year
  Sex: Female

DRUGS (8)
  1. TUKYSA [Suspect]
     Active Substance: TUCATINIB
     Indication: Breast cancer metastatic
     Dates: start: 20210726, end: 20240129
  2. TUKYSA [Suspect]
     Active Substance: TUCATINIB
     Dates: start: 20240311
  3. TUKYSA [Suspect]
     Active Substance: TUCATINIB
     Dosage: 150 MG; 2 TABLETS, TWICE A DAY.
     Route: 048
  4. TUKYSA [Suspect]
     Active Substance: TUCATINIB
     Dosage: 150 MG; 1 TABLET, TWICE A DAY.
     Route: 048
  5. XELODA [Concomitant]
     Active Substance: CAPECITABINE
     Indication: Breast cancer metastatic
     Dates: start: 20210726
  6. XELODA [Concomitant]
     Active Substance: CAPECITABINE
     Dates: end: 20230828
  7. HERCEPTIN [Concomitant]
     Active Substance: TRASTUZUMAB
     Indication: Breast cancer metastatic
     Dates: start: 20210726, end: 20240129
  8. HERCEPTIN [Concomitant]
     Active Substance: TRASTUZUMAB
     Dates: start: 20240311

REACTIONS (2)
  - Arthropathy [Unknown]
  - Product prescribing error [Unknown]
